FAERS Safety Report 7927591-8 (Version None)
Quarter: 2011Q4

REPORT INFORMATION
  Report Type: 
  Country: None (occurrence: None)
  Receive Date: 20111118
  Receipt Date: 20111114
  Transmission Date: 20120403
  Serious: Yes (Other)
  Sender: FDA-Public Use
  Company Number: JP-ROCHE-1003986

PATIENT
  Sex: Male
  Weight: 60 kg

DRUGS (3)
  1. AVASTIN [Suspect]
     Indication: LARGE INTESTINE CARCINOMA
     Route: 041
     Dates: start: 20110510, end: 20110705
  2. OXALIPLATIN [Suspect]
     Indication: RECTAL CANCER
     Dosage: DOSAGE IS UNCERTAIN.
     Route: 041
  3. XELODA [Suspect]
     Indication: RECTAL CANCER
     Dosage: 2-WEEK ON/1-WEEK OFF
     Route: 048
     Dates: start: 20110406, end: 20110825

REACTIONS (3)
  - ILEUS [None]
  - RECTAL PERFORATION [None]
  - ILEAL PERFORATION [None]
